FAERS Safety Report 14376044 (Version 1)
Quarter: 2018Q1

REPORT INFORMATION
  Report Type: Spontaneous
  Country: US (occurrence: US)
  Receive Date: 20180111
  Receipt Date: 20180111
  Transmission Date: 20180509
  Serious: No
  Sender: FDA-Public Use
  Company Number: US-BAYER-2018-004252

PATIENT
  Sex: Female

DRUGS (15)
  1. MOMETASONE [Concomitant]
     Active Substance: MOMETASONE
     Dosage: UNK
  2. MONUROL [Concomitant]
     Active Substance: FOSFOMYCIN TROMETHAMINE
     Dosage: UNK
  3. LANSOPRAZOLE. [Concomitant]
     Active Substance: LANSOPRAZOLE
     Dosage: UNK
  4. ASPIRIN. [Concomitant]
     Active Substance: ASPIRIN
     Dosage: UNK
  5. LISINOPRIL. [Concomitant]
     Active Substance: LISINOPRIL
     Dosage: UNK
  6. PETHOID [Concomitant]
     Dosage: UNK
  7. MAGINEX DS [Concomitant]
     Dosage: UNK
  8. HIPREX [Concomitant]
     Active Substance: METHENAMINE HIPPURATE
     Dosage: UNK
  9. MANDEPYRIN [METHENAM MANDELATE,PHENAZOPYR HCL,NA+ PHOS DIBAS] [Concomitant]
     Dosage: UNK
  10. BACLOFEN. [Concomitant]
     Active Substance: BACLOFEN
     Dosage: UNK
  11. FLUOROMETHOLONE. [Concomitant]
     Active Substance: FLUOROMETHOLONE
  12. CALCIUM [Concomitant]
     Active Substance: CALCIUM
     Dosage: UNK
  13. BETASERON [Suspect]
     Active Substance: INTERFERON BETA-1B
     Indication: MULTIPLE SCLEROSIS
     Dosage: 0.25 MG, QOD
     Route: 058
  14. TRIAM [Concomitant]
     Active Substance: TRIAMCINOLONE
     Dosage: UNK
  15. TRIAMCINOLON [Concomitant]
     Dosage: UNK

REACTIONS (1)
  - Food allergy [None]
